FAERS Safety Report 21872011 (Version 2)
Quarter: 2023Q2

REPORT INFORMATION
  Report Type: Report from Study
  Country: DE (occurrence: DE)
  Receive Date: 20230117
  Receipt Date: 20230623
  Transmission Date: 20230722
  Serious: Yes (Hospitalization)
  Sender: FDA-Public Use
  Company Number: DE-ABBVIE-4263415

PATIENT
  Age: 73 Year
  Sex: Female

DRUGS (20)
  1. METHOTREXATE SODIUM [Suspect]
     Active Substance: METHOTREXATE SODIUM
     Dosage: UNK UNK, WEEKLY
  2. RINVOQ [Suspect]
     Active Substance: UPADACITINIB
     Indication: Rheumatoid arthritis
     Dosage: 15 MG, 1X/DAY
     Route: 048
  3. GLIMEPIRIDE [Concomitant]
     Active Substance: GLIMEPIRIDE
  4. LERCANIDIPINE [Concomitant]
     Active Substance: LERCANIDIPINE
  5. VITAMIN D NOS [Concomitant]
     Active Substance: VITAMIN D NOS
  6. FOLIC ACID [Concomitant]
     Active Substance: FOLIC ACID
  7. PEPPERMINT OIL [Concomitant]
     Active Substance: PEPPERMINT OIL
  8. BISOPROLOL [Concomitant]
     Active Substance: BISOPROLOL
  9. NOVALGIN (METAMIZOLE SODIUM) [Concomitant]
     Active Substance: METAMIZOLE SODIUM
  10. IRBESARTAN [Concomitant]
     Active Substance: IRBESARTAN
  11. PANTOZOL [Concomitant]
     Active Substance: PANTOPRAZOLE SODIUM
  12. PREGABALIN [Concomitant]
     Active Substance: PREGABALIN
  13. ELIQUIS [Concomitant]
     Active Substance: APIXABAN
  14. NORSPAN [Concomitant]
     Active Substance: BUPRENORPHINE
  15. BETAHISTIN [BETAHISTINE MESILATE] [Concomitant]
  16. ALLOPURINOL [Concomitant]
     Active Substance: ALLOPURINOL
  17. MAGNESIUM [Concomitant]
     Active Substance: MAGNESIUM
  18. PREDNISONE [Concomitant]
     Active Substance: PREDNISONE
  19. TORSEMIDE [Concomitant]
     Active Substance: TORSEMIDE
  20. LEVOTHYROXINE [Concomitant]
     Active Substance: LEVOTHYROXINE

REACTIONS (4)
  - Ophthalmic herpes zoster [Not Recovered/Not Resolved]
  - Streptococcal infection [Recovered/Resolved]
  - Skin bacterial infection [Recovered/Resolved]
  - Impaired healing [Recovered/Resolved]

NARRATIVE: CASE EVENT DATE: 20220425
